FAERS Safety Report 14290764 (Version 1)
Quarter: 2017Q4

REPORT INFORMATION
  Report Type: Other
  Country: RU (occurrence: RU)
  Receive Date: 20171215
  Receipt Date: 20171215
  Transmission Date: 20180321
  Serious: Yes (Disabling, Other)
  Sender: FDA-Public Use
  Company Number: RU-EMD SERONO-9000225

PATIENT
  Sex: Male

DRUGS (1)
  1. INTERFERON BETA-1A [Suspect]
     Active Substance: INTERFERON BETA-1A
     Indication: MULTIPLE SCLEROSIS
     Dates: start: 2012

REACTIONS (6)
  - Paraparesis [Unknown]
  - Romberg test positive [Unknown]
  - Reflexes abnormal [Unknown]
  - Urinary incontinence [Unknown]
  - Expanded disability status scale score increased [Unknown]
  - Nystagmus [Unknown]
